FAERS Safety Report 10695528 (Version 3)
Quarter: 2015Q2

REPORT INFORMATION
  Report Type: Spontaneous
  Country: US (occurrence: US)
  Receive Date: 20150107
  Receipt Date: 20150401
  Transmission Date: 20150821
  Serious: No
  Sender: FDA-Public Use
  Company Number: US-009507513-1110USA03468

PATIENT
  Sex: Male
  Weight: 77.98 kg

DRUGS (1)
  1. PROPECIA [Suspect]
     Active Substance: FINASTERIDE
     Indication: ALOPECIA
     Dosage: 1 MG, QD
     Route: 048
     Dates: start: 20080813, end: 20080919

REACTIONS (19)
  - Depression [Unknown]
  - Peyronie^s disease [Unknown]
  - Ejaculation failure [Not Recovered/Not Resolved]
  - Anxiety [Unknown]
  - Plastic surgery [Unknown]
  - Social phobia [Unknown]
  - Sexual dysfunction [Not Recovered/Not Resolved]
  - Testicular pain [Unknown]
  - Sexual dysfunction [Not Recovered/Not Resolved]
  - Ejaculation disorder [Not Recovered/Not Resolved]
  - Urinary incontinence [Unknown]
  - Feeling abnormal [Unknown]
  - Psychiatric symptom [Unknown]
  - Libido decreased [Not Recovered/Not Resolved]
  - Hormone level abnormal [Unknown]
  - Cognitive disorder [Unknown]
  - Arterial insufficiency [Unknown]
  - Erectile dysfunction [Not Recovered/Not Resolved]
  - Adverse drug reaction [Recovered/Resolved]

NARRATIVE: CASE EVENT DATE: 2008
